FAERS Safety Report 25433564 (Version 1)
Quarter: 2025Q2

REPORT INFORMATION
  Report Type: Spontaneous
  Country: US (occurrence: None)
  Receive Date: 20250613
  Receipt Date: 20250613
  Transmission Date: 20250717
  Serious: No
  Sender: MDD OPERATIONS
  Company Number: US-MDD US Operations-MDD202501-000368

PATIENT
  Age: 78 Year
  Sex: Female

DRUGS (4)
  1. APOKYN [Suspect]
     Active Substance: APOMORPHINE HYDROCHLORIDE
     Indication: Parkinson^s disease
     Dates: start: 2022
  2. RYTARY [Concomitant]
     Active Substance: CARBIDOPA\LEVODOPA
  3. QUETIAPINE [Concomitant]
     Active Substance: QUETIAPINE
  4. ROPINIROLE [Concomitant]
     Active Substance: ROPINIROLE

REACTIONS (2)
  - Head injury [Unknown]
  - Fall [Unknown]

NARRATIVE: CASE EVENT DATE: 20250101
